FAERS Safety Report 9689765 (Version 3)
Quarter: 2014Q1

REPORT INFORMATION
  Report Type: Spontaneous
  Country: IT (occurrence: IT)
  Receive Date: 20131115
  Receipt Date: 20140111
  Transmission Date: 20141002
  Serious: Yes (Other)
  Sender: FDA-Public Use
  Company Number: IT-MERCK-1311ITA005599

PATIENT
  Age: 48 Year
  Sex: Male

DRUGS (4)
  1. SYCREST [Suspect]
     Indication: ANHEDONIA
     Dosage: 5 MG, DAILY
     Route: 060
     Dates: start: 20131030, end: 20131030
  2. SERTRALINE HYDROCHLORIDE [Concomitant]
     Dosage: 50 MG
     Route: 048
     Dates: start: 20130801, end: 20131031
  3. CARBOLITHIUM [Concomitant]
     Dosage: 900 MG,
     Route: 048
  4. GAVISCON (SODIUM ALGINATE (+) SODIUM BICARBONATE) [Concomitant]
     Dosage: UNK
     Route: 048

REACTIONS (4)
  - Periorbital haematoma [Recovering/Resolving]
  - Face injury [Recovering/Resolving]
  - Wound [Recovering/Resolving]
  - Syncope [Recovering/Resolving]
